FAERS Safety Report 17785423 (Version 2)
Quarter: 2020Q2

REPORT INFORMATION
  Report Type: Report from Study
  Country: EG (occurrence: EG)
  Receive Date: 20200514
  Receipt Date: 20200520
  Transmission Date: 20200714
  Serious: Yes (Other)
  Sender: FDA-Public Use
  Company Number: NVSC2020EG127829

PATIENT
  Age: 41 Year
  Sex: Female

DRUGS (3)
  1. KISQALI [Suspect]
     Active Substance: RIBOCICLIB
     Indication: METASTASES TO BONE
  2. FASLODEX [Concomitant]
     Active Substance: FULVESTRANT
     Indication: PRODUCT USED FOR UNKNOWN INDICATION
     Dosage: 2 INJECTION ONCE EVERY 15 DAYS THEN 2 INGECTION ONCE PER MONTH
     Route: 065
     Dates: start: 20200501
  3. KISQALI [Suspect]
     Active Substance: RIBOCICLIB
     Indication: BREAST CANCER
     Dosage: 3 DF, QD
     Route: 048
     Dates: start: 20200501

REACTIONS (3)
  - Cystitis noninfective [Recovering/Resolving]
  - Decreased immune responsiveness [Unknown]
  - Renal colic [Recovering/Resolving]

NARRATIVE: CASE EVENT DATE: 20200510
